FAERS Safety Report 25930002 (Version 2)
Quarter: 2025Q4

REPORT INFORMATION
  Report Type: Spontaneous
  Country: CA (occurrence: CA)
  Receive Date: 20251016
  Receipt Date: 20251021
  Transmission Date: 20260117
  Serious: Yes (Other)
  Sender: PFIZER
  Company Number: CA-PFIZER INC-PV202500121960

PATIENT
  Age: 62 Year
  Sex: Male

DRUGS (2)
  1. GEMCITABINE HYDROCHLORIDE [Suspect]
     Active Substance: GEMCITABINE HYDROCHLORIDE
     Indication: Transitional cell carcinoma metastatic
     Dosage: 1000 MG/M2, CYCLIC, DAY 1 AND DAY 8, EVERY 21 DAYS, (4 CYCLES)
     Route: 042
  2. CISPLATIN [Suspect]
     Active Substance: CISPLATIN
     Indication: Transitional cell carcinoma metastatic
     Dosage: 70 MG/M2, DAY 1, EVERY 21 DAYS, CYCLIC, (4 CYCLES)
     Route: 042

REACTIONS (4)
  - Deep vein thrombosis [Unknown]
  - Fatigue [Unknown]
  - Dizziness [Unknown]
  - Tinnitus [Unknown]
